FAERS Safety Report 25956197 (Version 1)
Quarter: 2025Q4

REPORT INFORMATION
  Report Type: Spontaneous
  Country: JP (occurrence: JP)
  Receive Date: 20251024
  Receipt Date: 20251024
  Transmission Date: 20260118
  Serious: Yes (Death, Hospitalization)
  Sender: MYLAN
  Company Number: JP-MYE-2025M1089456AA

PATIENT
  Age: 52 Year
  Sex: Female

DRUGS (60)
  1. MYCOPHENOLATE MOFETIL [Suspect]
     Active Substance: MYCOPHENOLATE MOFETIL
     Indication: Prophylaxis against graft versus host disease
  2. MYCOPHENOLATE MOFETIL [Suspect]
     Active Substance: MYCOPHENOLATE MOFETIL
     Route: 065
  3. MYCOPHENOLATE MOFETIL [Suspect]
     Active Substance: MYCOPHENOLATE MOFETIL
     Route: 065
  4. MYCOPHENOLATE MOFETIL [Suspect]
     Active Substance: MYCOPHENOLATE MOFETIL
  5. MICAFUNGIN [Suspect]
     Active Substance: MICAFUNGIN SODIUM
     Indication: Bronchopulmonary aspergillosis
     Dosage: 50 MILLIGRAM, QD
  6. MICAFUNGIN [Suspect]
     Active Substance: MICAFUNGIN SODIUM
     Dosage: 50 MILLIGRAM, QD
  7. MICAFUNGIN [Suspect]
     Active Substance: MICAFUNGIN SODIUM
     Dosage: 50 MILLIGRAM, QD
     Route: 065
  8. MICAFUNGIN [Suspect]
     Active Substance: MICAFUNGIN SODIUM
     Dosage: 50 MILLIGRAM, QD
     Route: 065
  9. MICAFUNGIN [Suspect]
     Active Substance: MICAFUNGIN SODIUM
     Dosage: 150 MILLIGRAM, QD
  10. MICAFUNGIN [Suspect]
     Active Substance: MICAFUNGIN SODIUM
     Dosage: 150 MILLIGRAM, QD
  11. MICAFUNGIN [Suspect]
     Active Substance: MICAFUNGIN SODIUM
     Dosage: 150 MILLIGRAM, QD
     Route: 065
  12. MICAFUNGIN [Suspect]
     Active Substance: MICAFUNGIN SODIUM
     Dosage: 150 MILLIGRAM, QD
     Route: 065
  13. AMPHOTERICIN B [Suspect]
     Active Substance: AMPHOTERICIN B
     Indication: Bronchopulmonary aspergillosis
     Dosage: 3 MILLIGRAM/KILOGRAM, QD
  14. AMPHOTERICIN B [Suspect]
     Active Substance: AMPHOTERICIN B
     Dosage: 3 MILLIGRAM/KILOGRAM, QD
  15. AMPHOTERICIN B [Suspect]
     Active Substance: AMPHOTERICIN B
     Dosage: 3 MILLIGRAM/KILOGRAM, QD
     Route: 065
  16. AMPHOTERICIN B [Suspect]
     Active Substance: AMPHOTERICIN B
     Dosage: 3 MILLIGRAM/KILOGRAM, QD
     Route: 065
  17. AMPHOTERICIN B [Suspect]
     Active Substance: AMPHOTERICIN B
     Dosage: 5 MILLIGRAM/KILOGRAM, QD
  18. AMPHOTERICIN B [Suspect]
     Active Substance: AMPHOTERICIN B
     Dosage: 5 MILLIGRAM/KILOGRAM, QD
  19. AMPHOTERICIN B [Suspect]
     Active Substance: AMPHOTERICIN B
     Dosage: 5 MILLIGRAM/KILOGRAM, QD
     Route: 065
  20. AMPHOTERICIN B [Suspect]
     Active Substance: AMPHOTERICIN B
     Dosage: 5 MILLIGRAM/KILOGRAM, QD
     Route: 065
  21. METHYLPREDNISOLONE [Suspect]
     Active Substance: METHYLPREDNISOLONE
     Indication: Bronchopulmonary aspergillosis
     Dosage: DOSE INCREASED
  22. METHYLPREDNISOLONE [Suspect]
     Active Substance: METHYLPREDNISOLONE
     Dosage: DOSE INCREASED
     Route: 065
  23. METHYLPREDNISOLONE [Suspect]
     Active Substance: METHYLPREDNISOLONE
     Dosage: DOSE INCREASED
     Route: 065
  24. METHYLPREDNISOLONE [Suspect]
     Active Substance: METHYLPREDNISOLONE
     Dosage: DOSE INCREASED
  25. ISAVUCONAZOLE [Suspect]
     Active Substance: ISAVUCONAZOLE
     Indication: Bronchopulmonary aspergillosis
     Dosage: SIX DOSES
  26. ISAVUCONAZOLE [Suspect]
     Active Substance: ISAVUCONAZOLE
     Dosage: SIX DOSES
  27. ISAVUCONAZOLE [Suspect]
     Active Substance: ISAVUCONAZOLE
     Dosage: SIX DOSES
     Route: 065
  28. ISAVUCONAZOLE [Suspect]
     Active Substance: ISAVUCONAZOLE
     Dosage: SIX DOSES
     Route: 065
  29. ISAVUCONAZOLE [Suspect]
     Active Substance: ISAVUCONAZOLE
     Dosage: 200 MILLIGRAM, QD
  30. ISAVUCONAZOLE [Suspect]
     Active Substance: ISAVUCONAZOLE
     Dosage: 200 MILLIGRAM, QD
  31. ISAVUCONAZOLE [Suspect]
     Active Substance: ISAVUCONAZOLE
     Dosage: 200 MILLIGRAM, QD
     Route: 065
  32. ISAVUCONAZOLE [Suspect]
     Active Substance: ISAVUCONAZOLE
     Dosage: 200 MILLIGRAM, QD
     Route: 065
  33. TACROLIMUS [Suspect]
     Active Substance: TACROLIMUS
     Indication: Prophylaxis against graft versus host disease
  34. TACROLIMUS [Suspect]
     Active Substance: TACROLIMUS
     Route: 065
  35. TACROLIMUS [Suspect]
     Active Substance: TACROLIMUS
     Route: 065
  36. TACROLIMUS [Suspect]
     Active Substance: TACROLIMUS
  37. RUXOLITINIB [Suspect]
     Active Substance: RUXOLITINIB
     Indication: Prophylaxis against graft versus host disease
  38. RUXOLITINIB [Suspect]
     Active Substance: RUXOLITINIB
     Route: 065
  39. RUXOLITINIB [Suspect]
     Active Substance: RUXOLITINIB
     Route: 065
  40. RUXOLITINIB [Suspect]
     Active Substance: RUXOLITINIB
  41. SULFAMETHOXAZOLE\TRIMETHOPRIM [Concomitant]
     Active Substance: SULFAMETHOXAZOLE\TRIMETHOPRIM
     Indication: Pneumocystis jirovecii pneumonia
  42. SULFAMETHOXAZOLE\TRIMETHOPRIM [Concomitant]
     Active Substance: SULFAMETHOXAZOLE\TRIMETHOPRIM
     Route: 065
  43. SULFAMETHOXAZOLE\TRIMETHOPRIM [Concomitant]
     Active Substance: SULFAMETHOXAZOLE\TRIMETHOPRIM
     Route: 065
  44. SULFAMETHOXAZOLE\TRIMETHOPRIM [Concomitant]
     Active Substance: SULFAMETHOXAZOLE\TRIMETHOPRIM
  45. CEFEPIME [Concomitant]
     Active Substance: CEFEPIME HYDROCHLORIDE
     Indication: Evidence based treatment
  46. CEFEPIME [Concomitant]
     Active Substance: CEFEPIME HYDROCHLORIDE
     Route: 065
  47. CEFEPIME [Concomitant]
     Active Substance: CEFEPIME HYDROCHLORIDE
     Route: 065
  48. CEFEPIME [Concomitant]
     Active Substance: CEFEPIME HYDROCHLORIDE
  49. FLUDARABINE [Concomitant]
     Active Substance: FLUDARABINE PHOSPHATE
     Indication: High frequency ablation
  50. FLUDARABINE [Concomitant]
     Active Substance: FLUDARABINE PHOSPHATE
     Route: 042
  51. FLUDARABINE [Concomitant]
     Active Substance: FLUDARABINE PHOSPHATE
     Route: 042
  52. FLUDARABINE [Concomitant]
     Active Substance: FLUDARABINE PHOSPHATE
  53. BUSULFAN [Concomitant]
     Active Substance: BUSULFAN
     Indication: High frequency ablation
  54. BUSULFAN [Concomitant]
     Active Substance: BUSULFAN
     Route: 042
  55. BUSULFAN [Concomitant]
     Active Substance: BUSULFAN
     Route: 042
  56. BUSULFAN [Concomitant]
     Active Substance: BUSULFAN
  57. MELPHALAN [Concomitant]
     Active Substance: MELPHALAN
     Indication: High frequency ablation
  58. MELPHALAN [Concomitant]
     Active Substance: MELPHALAN
     Route: 042
  59. MELPHALAN [Concomitant]
     Active Substance: MELPHALAN
     Route: 042
  60. MELPHALAN [Concomitant]
     Active Substance: MELPHALAN

REACTIONS (2)
  - Disease progression [Fatal]
  - Drug ineffective [Fatal]
